FAERS Safety Report 9700901 (Version 1)
Quarter: 2013Q4

REPORT INFORMATION
  Report Type: Spontaneous
  Country: US (occurrence: US)
  Receive Date: 20131121
  Receipt Date: 20131121
  Transmission Date: 20140711
  Serious: Yes (Other)
  Sender: FDA-Public Use
  Company Number: PHEH2013US024345

PATIENT
  Age: 79 Year
  Sex: Female

DRUGS (6)
  1. EXFORGE [Suspect]
     Dosage: 320/10MG, QD
     Route: 048
  2. EXFORGE HCT [Suspect]
     Dosage: 320/10/25 MG, QD
     Route: 048
     Dates: start: 201203
  3. FUROSEMIDE TABLETS USP [Suspect]
     Indication: SWELLING
     Dosage: UNK UKN, PRN
  4. DIGOXIN [Suspect]
     Indication: CARDIAC DISORDER
     Dosage: UNK UKN, UNK
  5. POTASSIUM CHLORIDE [Suspect]
     Indication: SWELLING
     Dosage: UNK UKN, PRN
  6. LEVOTHYROXINE [Suspect]
     Indication: THYROID DISORDER
     Dosage: UNK UKN, UNK

REACTIONS (4)
  - Pancreatic carcinoma [Unknown]
  - Tumour marker increased [Unknown]
  - Chest pain [Unknown]
  - Back pain [Unknown]
